FAERS Safety Report 13795612 (Version 2)
Quarter: 2017Q3

REPORT INFORMATION
  Report Type: Spontaneous
  Country: US (occurrence: US)
  Receive Date: 20170726
  Receipt Date: 20170801
  Transmission Date: 20171127
  Serious: No
  Sender: FDA-Public Use
  Company Number: US-009507513-1707USA007316

PATIENT
  Age: 55 Year

DRUGS (6)
  1. HYDROCHLOROTHIAZIDE. [Concomitant]
     Active Substance: HYDROCHLOROTHIAZIDE
  2. ZEPATIER [Suspect]
     Active Substance: ELBASVIR\GRAZOPREVIR
     Indication: HEPATITIS C
     Dosage: 1 TABLET (50/100 MG), EVERY DAY
     Route: 048
     Dates: start: 201706
  3. BENZONATATE. [Concomitant]
     Active Substance: BENZONATATE
  4. PANTOPRAZOLE SODIUM. [Concomitant]
     Active Substance: PANTOPRAZOLE SODIUM
  5. GINGER. [Concomitant]
     Active Substance: GINGER
  6. CLONAZEPAM. [Concomitant]
     Active Substance: CLONAZEPAM

REACTIONS (10)
  - Myalgia [Unknown]
  - Fatigue [Unknown]
  - Drug interaction [Unknown]
  - Constipation [Unknown]
  - Faeces discoloured [Unknown]
  - Renal pain [Unknown]
  - Cough [Unknown]
  - Chromaturia [Unknown]
  - Insomnia [Unknown]
  - Nausea [Unknown]

NARRATIVE: CASE EVENT DATE: 2017
